FAERS Safety Report 5282188-6 (Version None)
Quarter: 2007Q1

REPORT INFORMATION
  Report Type: 
  Country: None (occurrence: None)
  Receive Date: 20070330
  Receipt Date: 20070320
  Transmission Date: 20070707
  Serious: Yes (Other)
  Sender: FDA-Public Use
  Company Number: JP-PFIZER INC-2007016560

PATIENT
  Sex: Female
  Weight: 44 kg

DRUGS (15)
  1. LIPITOR [Suspect]
     Route: 048
  2. HERBAL PREPARATION [Suspect]
     Indication: NECK PAIN
  3. HERBAL PREPARATION [Suspect]
     Indication: MUSCULOSKELETAL PAIN
  4. ACONITE [Suspect]
     Indication: NECK PAIN
  5. ACONITE [Suspect]
     Indication: MUSCULOSKELETAL PAIN
  6. KAKKON-TO [Suspect]
     Indication: NECK PAIN
  7. KAKKON-TO [Suspect]
     Indication: MUSCULOSKELETAL PAIN
  8. LOXONIN [Suspect]
     Route: 048
  9. CLARITIN [Suspect]
     Route: 048
  10. JUVELA [Concomitant]
     Route: 048
  11. MERISLON [Concomitant]
  12. QVAR 40 [Concomitant]
     Route: 055
  13. GASTER [Concomitant]
     Route: 048
  14. GANATON [Concomitant]
     Route: 048
  15. SHAKUYAKU-KANZO-TO [Concomitant]
     Route: 048

REACTIONS (13)
  - ABDOMINAL PAIN UPPER [None]
  - ALANINE AMINOTRANSFERASE INCREASED [None]
  - ASPARTATE AMINOTRANSFERASE INCREASED [None]
  - BLOOD BILIRUBIN INCREASED [None]
  - CATARACT [None]
  - CERVICOBRACHIAL SYNDROME [None]
  - DIARRHOEA [None]
  - DIZZINESS [None]
  - GAMMA-GLUTAMYLTRANSFERASE INCREASED [None]
  - HEADACHE [None]
  - NAUSEA [None]
  - TINNITUS [None]
  - URINE COLOUR ABNORMAL [None]
